FAERS Safety Report 4485853-3 (Version None)
Quarter: 2004Q4

REPORT INFORMATION
  Report Type: 
  Country: None (occurrence: None)
  Receive Date: 20041022
  Receipt Date: 20040722
  Transmission Date: 20050328
  Serious: Yes (Hospitalization)
  Sender: FDA-Public Use
  Company Number: 2004UW15495

PATIENT
  Age: 62 Year
  Sex: Female
  Weight: 72.5755 kg

DRUGS (11)
  1. SEROQUEL [Suspect]
     Indication: ANXIETY
     Dosage: 100 MG HS PO
     Route: 048
     Dates: start: 20040322, end: 20040702
  2. SEROQUEL [Suspect]
     Indication: HALLUCINATION, VISUAL
     Dosage: 100 MG HS PO
     Route: 048
     Dates: start: 20040322, end: 20040702
  3. SEROQUEL [Suspect]
     Indication: SLEEP DISORDER
     Dosage: 100 MG HS PO
     Route: 048
     Dates: start: 20040322, end: 20040702
  4. GABAPENTIN [Concomitant]
  5. TRAMADOL HCL [Concomitant]
  6. ATORVASTATIN [Concomitant]
  7. ROFECOXIB [Concomitant]
  8. SINGULAIR [Concomitant]
  9. TAMOXIFEN [Concomitant]
  10. NEXIUM [Concomitant]
  11. COZAAR [Concomitant]

REACTIONS (3)
  - DIABETES MELLITUS NON-INSULIN-DEPENDENT [None]
  - DIABETIC HYPEROSMOLAR COMA [None]
  - DIABETIC KETOACIDOSIS [None]
